FAERS Safety Report 9667839 (Version 2)
Quarter: 2013Q4

REPORT INFORMATION
  Report Type: Spontaneous
  Country: US (occurrence: US)
  Receive Date: 20131104
  Receipt Date: 20131104
  Transmission Date: 20140711
  Serious: Yes (Hospitalization, Other)
  Sender: FDA-Public Use
  Company Number: US-ABBVIE-12P-163-0988589-00

PATIENT
  Age: 35 Year
  Sex: Male

DRUGS (5)
  1. HUMIRA [Suspect]
     Dates: start: 201109, end: 201202
  2. HUMIRA [Suspect]
     Dates: start: 201209, end: 201209
  3. HUMIRA [Suspect]
     Route: 058
     Dates: end: 20110217
  4. HUMIRA [Suspect]
     Route: 058
     Dates: start: 201104
  5. IMURAN [Concomitant]
     Indication: CROHN^S DISEASE
     Dates: start: 2012

REACTIONS (10)
  - Fistula [Not Recovered/Not Resolved]
  - Abscess [Not Recovered/Not Resolved]
  - Gastrointestinal disorder [Recovered/Resolved]
  - Sepsis [Recovered/Resolved]
  - Pain [Not Recovered/Not Resolved]
  - Procedural pain [Not Recovered/Not Resolved]
  - Pain in extremity [Not Recovered/Not Resolved]
  - Arthralgia [Not Recovered/Not Resolved]
  - Pain in extremity [Not Recovered/Not Resolved]
  - Intestinal obstruction [Unknown]
